FAERS Safety Report 8265517-0 (Version None)
Quarter: 2012Q2

REPORT INFORMATION
  Report Type: 
  Country: None (occurrence: None)
  Receive Date: 20120406
  Receipt Date: 20120402
  Transmission Date: 20120825
  Serious: Yes (Other)
  Sender: FDA-Public Use
  Company Number: US-PFIZER INC-2012083444

PATIENT
  Sex: Female
  Weight: 97.052 kg

DRUGS (7)
  1. PREMPRO [Concomitant]
     Indication: ILL-DEFINED DISORDER
     Dosage: UNK
  2. WELLBUTRIN [Concomitant]
     Dosage: UNK
  3. RANITIDINE [Concomitant]
     Dosage: UNK
  4. ALLEGRA [Concomitant]
     Dosage: UNK
  5. SYNTHROID [Concomitant]
     Indication: BASEDOW'S DISEASE
     Dosage: UNK
  6. CELEXA [Concomitant]
     Dosage: UNK
  7. CELEBREX [Suspect]
     Indication: ARTHRALGIA
     Dosage: 100 MG, 1X/DAY
     Route: 048
     Dates: start: 20111215, end: 20120325

REACTIONS (3)
  - MYALGIA [None]
  - CAROTID ARTERY ANEURYSM [None]
  - ARTHRALGIA [None]
